FAERS Safety Report 21620708 (Version 1)
Quarter: 2022Q4

REPORT INFORMATION
  Report Type: Spontaneous
  Country: US (occurrence: US)
  Receive Date: 20221121
  Receipt Date: 20221121
  Transmission Date: 20230113
  Serious: Yes (Other)
  Sender: FDA-Public Use
  Company Number: US-ABBVIE-4206667

PATIENT
  Sex: Female

DRUGS (1)
  1. IMBRUVICA [Suspect]
     Active Substance: IBRUTINIB
     Indication: Follicular lymphoma
     Dosage: FORM STRENGTH: 420 MILLIGRAM
     Route: 048

REACTIONS (6)
  - Megakaryocytes abnormal [Recovered/Resolved]
  - Infertility [Unknown]
  - Cytopenia [Unknown]
  - Oligospermia [Recovered/Resolved]
  - Myelodysplastic syndrome [Unknown]
  - Thrombocytopenia [Unknown]
